FAERS Safety Report 14353733 (Version 2)
Quarter: 2018Q3

REPORT INFORMATION
  Report Type: Spontaneous
  Country: DE (occurrence: DE)
  Receive Date: 20180105
  Receipt Date: 20180814
  Transmission Date: 20181010
  Serious: Yes (Hospitalization, Other)
  Sender: FDA-Public Use
  Company Number: DE-SAMSUNG BIOEPIS-SB-2017-12460

PATIENT
  Sex: Female

DRUGS (3)
  1. METHOTREXATE (METHOTREXATE) [Concomitant]
     Active Substance: METHOTREXATE
     Indication: PRODUCT USED FOR UNKNOWN INDICATION
     Route: 065
  2. INFLIXIMAB [Suspect]
     Active Substance: INFLIXIMAB
     Indication: RHEUMATIC DISORDER
     Dosage: UNKNWOWN
     Route: 042
     Dates: start: 20170718, end: 20170718
  3. INFLIXIMAB [Suspect]
     Active Substance: INFLIXIMAB
     Dosage: BS FOR I.V. INFUSION100 MG [NK], 1.5 DOSAGE FORM /DAY
     Route: 042

REACTIONS (7)
  - Septic shock [Recovered/Resolved]
  - Renal abscess [Unknown]
  - Depression [Unknown]
  - Abdominal pain upper [Unknown]
  - Product use in unapproved indication [Unknown]
  - Decreased appetite [Unknown]
  - Dementia [Unknown]

NARRATIVE: CASE EVENT DATE: 20170907
